FAERS Safety Report 15856717 (Version 1)
Quarter: 2019Q1

REPORT INFORMATION
  Report Type: Spontaneous
  Country: US (occurrence: US)
  Receive Date: 20190123
  Receipt Date: 20190123
  Transmission Date: 20190417
  Serious: No
  Sender: FDA-Public Use
  Company Number: PHEH2019US003020

PATIENT
  Sex: Female

DRUGS (1)
  1. PROMACTA [Suspect]
     Active Substance: ELTROMBOPAG OLAMINE
     Indication: IMMUNE THROMBOCYTOPENIC PURPURA
     Dosage: 50 MG, QD
     Route: 048
     Dates: start: 20181104

REACTIONS (6)
  - Fatigue [Unknown]
  - Pain [Unknown]
  - Toothache [Unknown]
  - Musculoskeletal pain [Unknown]
  - Alopecia [Unknown]
  - Vision blurred [Unknown]
